FAERS Safety Report 25120198 (Version 1)
Quarter: 2025Q1

REPORT INFORMATION
  Report Type: Spontaneous
  Country: US (occurrence: None)
  Receive Date: 20250325
  Receipt Date: 20250325
  Transmission Date: 20250409
  Serious: Yes (Disabling, Other)
  Sender: FDA-CTU
  Company Number: None

PATIENT
  Age: 46 Year
  Sex: Female
  Weight: 121.5 kg

DRUGS (11)
  1. FLUVOXAMINE MALEATE [Suspect]
     Active Substance: FLUVOXAMINE MALEATE
  2. LAMOTRIGINE [Suspect]
     Active Substance: LAMOTRIGINE
  3. XANAX [Suspect]
     Active Substance: ALPRAZOLAM
  4. D3+K2 for immune + mood support [Concomitant]
  5. L-methylfolate Ca/Me [Concomitant]
  6. DIETARY SUPPLEMENT [Concomitant]
     Active Substance: DIETARY SUPPLEMENT
  7. FISH OIL [Concomitant]
     Active Substance: FISH OIL
  8. MAGNESIUM GLYCINATE [Concomitant]
     Active Substance: MAGNESIUM GLYCINATE
  9. ZINC [Concomitant]
     Active Substance: ZINC
  10. LITHIUM [Suspect]
     Active Substance: LITHIUM
  11. ADDERALL [Suspect]
     Active Substance: AMPHETAMINE ASPARTATE\AMPHETAMINE SULFATE\DEXTROAMPHETAMINE SACCHARATE\DEXTROAMPHETAMINE SULFATE

REACTIONS (25)
  - Initial insomnia [None]
  - Nervousness [None]
  - Agitation [None]
  - Hypoaesthesia [None]
  - Paraesthesia [None]
  - Decreased appetite [None]
  - Anxiety [None]
  - Frustration tolerance decreased [None]
  - Irritability [None]
  - Dizziness [None]
  - Disturbance in attention [None]
  - Memory impairment [None]
  - Confusional state [None]
  - Urine output decreased [None]
  - Urinary retention [None]
  - Weight increased [None]
  - Contusion [None]
  - Balance disorder [None]
  - Memory impairment [None]
  - Bedridden [None]
  - Loss of personal independence in daily activities [None]
  - Cognitive disorder [None]
  - Amnesia [None]
  - Speech disorder [None]
  - Abortion [None]
